FAERS Safety Report 12900597 (Version 4)
Quarter: 2017Q2

REPORT INFORMATION
  Report Type: Spontaneous
  Country: US (occurrence: US)
  Receive Date: 20161101
  Receipt Date: 20170505
  Transmission Date: 20170830
  Serious: Yes (Hospitalization)
  Sender: FDA-Public Use
  Company Number: US-ACTELION-A-US2016-144592

PATIENT
  Age: 74 Year
  Sex: Female

DRUGS (19)
  1. VENTAVIS [Suspect]
     Active Substance: ILOPROST
     Indication: PULMONARY ARTERIAL HYPERTENSION
     Dosage: 2.6 MCG, UNK
     Route: 055
     Dates: start: 20151204
  2. NORVASC [Concomitant]
     Active Substance: AMLODIPINE BESYLATE
     Dosage: 5 MG, QD
     Route: 048
  3. LIPITOR [Concomitant]
     Active Substance: ATORVASTATIN CALCIUM
     Dosage: 40 MG, QD
     Route: 048
  4. LEXAPRO [Concomitant]
     Active Substance: ESCITALOPRAM OXALATE
     Dosage: 20 MG, QD
     Route: 048
  5. LYRICA [Concomitant]
     Active Substance: PREGABALIN
     Dosage: 50 MG, BID
     Route: 048
  6. VENTAVIS [Suspect]
     Active Substance: ILOPROST
     Dosage: 5 MCG, Q4HRS
     Route: 055
     Dates: start: 20151229
  7. AFRIN [Concomitant]
     Active Substance: OXYMETAZOLINE
     Dosage: 2 SPRAYSUNK
     Route: 055
  8. BUMEX [Concomitant]
     Active Substance: BUMETANIDE
     Dosage: 6 MG, BID
     Route: 048
  9. PROTONIX [Concomitant]
     Active Substance: PANTOPRAZOLE SODIUM
     Dosage: 40 MG, BID
     Route: 048
  10. COLACE [Concomitant]
     Active Substance: DOCUSATE SODIUM
     Dosage: 100 MG, TID
  11. MUCINEX [Concomitant]
     Active Substance: GUAIFENESIN
     Dosage: 600 MG, Q12HRS
  12. LANTUS [Concomitant]
     Active Substance: INSULIN GLARGINE
     Dosage: 25 U, QD
     Route: 058
  13. ADVAIR HFA [Concomitant]
     Active Substance: FLUTICASONE PROPIONATE\SALMETEROL XINAFOATE
     Dosage: 1 PUFF
     Route: 055
  14. RENVELA [Concomitant]
     Active Substance: SEVELAMER CARBONATE
     Dosage: 1.6 G, TID
     Route: 048
  15. ARANESP [Concomitant]
     Active Substance: DARBEPOETIN ALFA
     Dosage: 40 MG, WEEKLY
     Route: 058
  16. VENTAVIS [Suspect]
     Active Substance: ILOPROST
     Dosage: 2.6 MCG, UNK
     Route: 055
  17. OXYGEN. [Concomitant]
     Active Substance: OXYGEN
     Dosage: 3 L, UNK
  18. METOLAZONE. [Concomitant]
     Active Substance: METOLAZONE
  19. NOVOLOG [Concomitant]
     Active Substance: INSULIN ASPART
     Dosage: 18 U, TID
     Route: 058

REACTIONS (21)
  - Oedema [Not Recovered/Not Resolved]
  - Weight increased [Recovering/Resolving]
  - Peripheral swelling [Recovering/Resolving]
  - Melaena [Recovering/Resolving]
  - Large intestine polyp [Recovering/Resolving]
  - Gout [Recovering/Resolving]
  - Gastritis erosive [Recovering/Resolving]
  - Fluid overload [Recovering/Resolving]
  - Abdominal distension [Recovering/Resolving]
  - Musculoskeletal pain [Recovering/Resolving]
  - Haemoglobin decreased [Recovering/Resolving]
  - Muscle spasms [Recovering/Resolving]
  - Pain in jaw [Recovering/Resolving]
  - Anaemia [Recovering/Resolving]
  - Right ventricular failure [Recovering/Resolving]
  - Acute kidney injury [Recovering/Resolving]
  - Cardiac failure acute [Recovering/Resolving]
  - Dyspnoea [Recovered/Resolved]
  - Gastrointestinal haemorrhage [Recovering/Resolving]
  - Transfusion [Unknown]
  - Muscle twitching [Recovering/Resolving]

NARRATIVE: CASE EVENT DATE: 20170304
